FAERS Safety Report 5416660-2 (Version None)
Quarter: 2007Q3

REPORT INFORMATION
  Report Type: 
  Country: None (occurrence: None)
  Receive Date: 20070814
  Receipt Date: 20070801
  Transmission Date: 20080115
  Serious: Yes (Disabling)
  Sender: FDA-Public Use
  Company Number: 2007328199

PATIENT
  Sex: Female

DRUGS (1)
  1. REGAINE 5%           (MINOXIDIL) [Suspect]
     Indication: ALOPECIA
     Dosage: EVERY DAY, TOPICAL
     Route: 061
     Dates: start: 20070421, end: 20070619

REACTIONS (3)
  - ALOPECIA [None]
  - CONDITION AGGRAVATED [None]
  - PHARMACEUTICAL PRODUCT COMPLAINT [None]
